FAERS Safety Report 7240863-8 (Version None)
Quarter: 2011Q1

REPORT INFORMATION
  Report Type: 
  Country: None (occurrence: None)
  Receive Date: 20110120
  Receipt Date: 20110120
  Transmission Date: 20110831
  Serious: Yes (Life-Threatening, Disabling)
  Sender: FDA-Public Use
  Company Number: None

PATIENT
  Age: 85 Year
  Sex: Female
  Weight: 63.5036 kg

DRUGS (2)
  1. DARVON [Suspect]
     Indication: CARTILAGE INJURY
     Dosage: 1 TABLET EVERY 6 HRS ORALLY (30 DAY SCRIPT)
     Route: 048
     Dates: start: 20100716, end: 20100816
  2. DARVOCET-N 100 [Suspect]
     Indication: CARTILAGE INJURY
     Dosage: 1 TABLET EVERY 6 HRS ORALLY (30 DAY SCRIPT
     Route: 048
     Dates: start: 20100805, end: 20100905

REACTIONS (3)
  - ATRIAL FIBRILLATION [None]
  - FATIGUE [None]
  - ABDOMINAL DISCOMFORT [None]
